FAERS Safety Report 24672666 (Version 3)
Quarter: 2024Q4

REPORT INFORMATION
  Report Type: Report from Study
  Country: KR (occurrence: KR)
  Receive Date: 20241127
  Receipt Date: 20241207
  Transmission Date: 20250115
  Serious: Yes (Hospitalization)
  Sender: ABBVIE
  Company Number: KR-ABBVIE-6017174

PATIENT
  Age: 58 Year
  Sex: Male
  Weight: 57 kg

DRUGS (9)
  1. RINVOQ [Suspect]
     Active Substance: UPADACITINIB
     Indication: Crohn^s disease
     Dosage: MODIFIED-RELEASE FILM-COATED TABLET
     Route: 048
     Dates: start: 20240828, end: 20241119
  2. RINVOQ [Suspect]
     Active Substance: UPADACITINIB
     Indication: Crohn^s disease
     Dosage: MODIFIED-RELEASE FILM-COATED TABLET
     Route: 048
     Dates: start: 20241202
  3. PENTASA [Concomitant]
     Active Substance: MESALAMINE
     Indication: Crohn^s disease
     Dosage: 2 GRAM?FORM STRENGTH: 1 GRAM
     Route: 048
     Dates: start: 20151114
  4. FERINJECT [Concomitant]
     Active Substance: FERRIC CARBOXYMALTOSE
     Indication: Iron deficiency anaemia
     Dosage: 20 MILLILITER?FORM STRENGTH: 10 MILLILITRE(S)
     Route: 042
     Dates: start: 20241015, end: 20241015
  5. FERINJECT [Concomitant]
     Active Substance: FERRIC CARBOXYMALTOSE
     Indication: Iron deficiency anaemia
     Dosage: 20 MILLILITER?FORM STRENGTH: 10 MILLILITRE(S)
     Route: 042
     Dates: start: 20241120, end: 20241120
  6. PENTASA [Concomitant]
     Active Substance: MESALAMINE
     Indication: Crohn^s disease
     Dosage: FORM STRENGTH: 1 GRAM
     Route: 054
     Dates: start: 20231018, end: 20240923
  7. HEMONIA [Concomitant]
     Indication: Iron deficiency anaemia
     Dosage: 150 MILLIGRAM??POLYSACCHARIDE IRON COMPLEX
     Route: 048
     Dates: start: 20241008
  8. Peniram [Concomitant]
     Indication: Prophylaxis
     Dosage: 1 AMPOULE?IN INJ 4MG
     Route: 042
     Dates: start: 20241122, end: 20241122
  9. Peniram [Concomitant]
     Indication: Prophylaxis
     Dosage: 1 AMPOULE?IN INJ 4MG
     Route: 042
     Dates: start: 20241121, end: 20241121

REACTIONS (4)
  - Iron deficiency anaemia [Recovered/Resolved]
  - Hypophosphataemia [Unknown]
  - Pyrexia [Recovered/Resolved]
  - Hypocalcaemia [Unknown]

NARRATIVE: CASE EVENT DATE: 20241120
